FAERS Safety Report 21657349 (Version 4)
Quarter: 2024Q2

REPORT INFORMATION
  Report Type: Report from Study
  Country: US (occurrence: US)
  Receive Date: 20221129
  Receipt Date: 20240404
  Transmission Date: 20240716
  Serious: Yes (Other)
  Sender: FDA-Public Use
  Company Number: US-ABBVIE-4163841

PATIENT
  Age: 61 Year
  Sex: Female
  Weight: 118 kg

DRUGS (14)
  1. HUMIRA [Suspect]
     Active Substance: ADALIMUMAB
     Indication: Rheumatoid arthritis
     Dosage: CITRATE FREE
     Route: 058
  2. HUMIRA [Suspect]
     Active Substance: ADALIMUMAB
     Dosage: CITRATE FREE, 40 MG
     Route: 058
     Dates: start: 2009, end: 2020
  3. HUMIRA [Suspect]
     Active Substance: ADALIMUMAB
     Dosage: CITRATE FREE
     Route: 058
     Dates: start: 20221201
  4. HUMIRA [Suspect]
     Active Substance: ADALIMUMAB
     Dosage: CITRATE FREE , STOP DATE SHOULD BE 2022
     Route: 058
     Dates: start: 20220607
  5. PREDNISONE [Concomitant]
     Active Substance: PREDNISONE
     Indication: Product used for unknown indication
     Dosage: 5 MG STRENGTH FORM
     Route: 048
  6. PREDNISONE [Concomitant]
     Active Substance: PREDNISONE
     Indication: Product used for unknown indication
     Dosage: 5 MG STRENGTH FORM
     Route: 048
  7. PREDNISONE [Concomitant]
     Active Substance: PREDNISONE
     Indication: Product used for unknown indication
     Dosage: 5 MG STRENGTH FORM
     Route: 048
     Dates: start: 20220929
  8. PREDNISONE [Concomitant]
     Active Substance: PREDNISONE
     Indication: Product used for unknown indication
     Dosage: TIME INTERVAL: 0.33333333 DAYS: 5 MG STRENGTH FORM
     Route: 048
  9. MODERNA COVID-19 VACCINE [Concomitant]
     Active Substance: ELASOMERAN
     Indication: COVID-19 immunisation
     Dosage: COVID-19 VACCINE
     Route: 030
  10. TYLENOL [Concomitant]
     Active Substance: ACETAMINOPHEN
     Indication: Product used for unknown indication
     Dosage: TAKE 2, AS NEEDED, 4-6 HOURS NOT TO EXCEED 8 TABLETS PER 24 HOURS AS NEEDED., STRENGHT FORM 500 MG
     Route: 048
     Dates: start: 20200624
  11. ALEVE [Concomitant]
     Active Substance: NAPROXEN SODIUM
     Indication: Product used for unknown indication
     Dosage: TAKE 1 , AS NEEDED
     Route: 048
     Dates: start: 20200624
  12. CAFFEINE [Concomitant]
     Active Substance: CAFFEINE
     Indication: Product used for unknown indication
     Dosage: TEA  2 CUPS A DAY.
  13. ANASTROZOLE [Concomitant]
     Active Substance: ANASTROZOLE
     Indication: Product used for unknown indication
     Dates: end: 2023
  14. PROLIA [Concomitant]
     Active Substance: DENOSUMAB
     Indication: Product used for unknown indication

REACTIONS (15)
  - Intraductal proliferative breast lesion [Unknown]
  - Pain in extremity [Unknown]
  - Therapeutic product effect incomplete [Not Recovered/Not Resolved]
  - Disease risk factor [Unknown]
  - Gait inability [Unknown]
  - Meniscus injury [Unknown]
  - Stress fracture [Unknown]
  - Bone swelling [Unknown]
  - Plantar fasciitis [Unknown]
  - Rheumatoid arthritis [Not Recovered/Not Resolved]
  - Morton^s neuralgia [Recovering/Resolving]
  - Viral upper respiratory tract infection [Unknown]
  - Musculoskeletal stiffness [Unknown]
  - Peripheral swelling [Unknown]
  - Osteopenia [Unknown]

NARRATIVE: CASE EVENT DATE: 20200601
